FAERS Safety Report 4947465-4 (Version None)
Quarter: 2006Q1

REPORT INFORMATION
  Report Type: 
  Country: None (occurrence: None)
  Receive Date: 20060313
  Receipt Date: 20060228
  Transmission Date: 20060701
  Serious: Yes (Hospitalization, Other)
  Sender: FDA-Public Use
  Company Number: 2006032822

PATIENT
  Age: 4 Year
  Sex: Male

DRUGS (3)
  1. DILANTIN [Suspect]
     Indication: CONVULSION
  2. LYRICA [Suspect]
     Indication: CONVULSION
     Dosage: 150 MG (75 MG, 2 IN 1 D),ORAL
     Route: 048
     Dates: start: 20060222, end: 20060224
  3. PHENOBARBITAL TAB [Suspect]
     Indication: CONVULSION

REACTIONS (14)
  - CONCUSSION [None]
  - CONDITION AGGRAVATED [None]
  - CONFUSIONAL STATE [None]
  - DIZZINESS [None]
  - DRUG INTERACTION [None]
  - EYE INJURY [None]
  - FALL [None]
  - GRAND MAL CONVULSION [None]
  - MYDRIASIS [None]
  - NEUROLOGICAL COMPLICATION FROM DEVICE [None]
  - PRESCRIBED OVERDOSE [None]
  - RETINAL DISORDER [None]
  - SOMNOLENCE [None]
  - WEIGHT DECREASED [None]
